FAERS Safety Report 5537526-3 (Version None)
Quarter: 2007Q4

REPORT INFORMATION
  Report Type: 
  Country: None (occurrence: None)
  Receive Date: 20071207
  Receipt Date: 20071127
  Transmission Date: 20080405
  Serious: Yes (Death)
  Sender: FDA-Public Use
  Company Number: CH-AMGEN-US245541

PATIENT
  Age: 70 Year
  Sex: Male

DRUGS (5)
  1. ENBREL [Suspect]
     Indication: ERYTHRODERMIC PSORIASIS
     Route: 065
     Dates: start: 20050601, end: 20070525
  2. BLOPRESS [Concomitant]
     Route: 065
  3. BELOC ZOK [Concomitant]
     Route: 065
  4. SINTROM [Concomitant]
     Route: 065
  5. INSULIN [Concomitant]
     Route: 065

REACTIONS (1)
  - DEATH [None]
